FAERS Safety Report 13568817 (Version 4)
Quarter: 2017Q2

REPORT INFORMATION
  Report Type: Spontaneous
  Country: US (occurrence: US)
  Receive Date: 20170522
  Receipt Date: 20170628
  Transmission Date: 20170830
  Serious: No
  Sender: FDA-Public Use
  Company Number: US-PFIZER INC-2017225263

PATIENT
  Age: 68 Year
  Sex: Female

DRUGS (2)
  1. CELEBREX [Suspect]
     Active Substance: CELECOXIB
     Indication: ARTHRITIS
     Dosage: 200 MG, 1X/DAY (MORNING)
     Dates: start: 20170518
  2. CELEBREX [Suspect]
     Active Substance: CELECOXIB
     Dosage: UNK (TAKING EVERY 4 DAYS)

REACTIONS (4)
  - Expired product administered [Unknown]
  - Intentional product misuse [Unknown]
  - Pruritus [Not Recovered/Not Resolved]
  - Erythema [Not Recovered/Not Resolved]

NARRATIVE: CASE EVENT DATE: 20170518
